FAERS Safety Report 6679520-5 (Version None)
Quarter: 2010Q2

REPORT INFORMATION
  Report Type: 
  Country: None (occurrence: None)
  Receive Date: 20100413
  Receipt Date: 20100401
  Transmission Date: 20101027
  Serious: Yes (Other)
  Sender: FDA-Public Use
  Company Number: PHHY2010JP08207

PATIENT
  Sex: Male
  Weight: 67 kg

DRUGS (3)
  1. FLUVASTATIN [Suspect]
     Indication: HEPATITIS C
     Dosage: 30 MG PER DAY
     Route: 048
     Dates: start: 20091228, end: 20100130
  2. REBETOL [Concomitant]
     Indication: HEPATITIS C
     Dosage: 4 DF, UNK
     Route: 048
     Dates: start: 20091222
  3. PEG-INTRON [Concomitant]
     Indication: HEPATITIS C
     Dosage: 80 UG, UNK
     Route: 058
     Dates: start: 20091222

REACTIONS (5)
  - BACK PAIN [None]
  - HYPOAESTHESIA [None]
  - MUSCULAR WEAKNESS [None]
  - MUSCULOSKELETAL PAIN [None]
  - SLEEP DISORDER [None]
